FAERS Safety Report 8159806-8 (Version None)
Quarter: 2012Q1

REPORT INFORMATION
  Report Type: 
  Country: None (occurrence: None)
  Receive Date: 20120223
  Receipt Date: 20120215
  Transmission Date: 20120608
  Serious: Yes (Hospitalization)
  Sender: FDA-Public Use
  Company Number: US-BAYER-2012-016969

PATIENT
  Age: 23 Year
  Sex: Female

DRUGS (3)
  1. DROSPIRENONE AND ETHINYL ESTRADIOL [Suspect]
  2. DROSPIRENONE AND ETHINYL ESTRADIOL [Concomitant]
  3. YASMIN [Suspect]

REACTIONS (2)
  - HAEMORRHAGE INTRACRANIAL [None]
  - SUPERIOR SAGITTAL SINUS THROMBOSIS [None]
